FAERS Safety Report 5487362-1 (Version None)
Quarter: 2007Q4

REPORT INFORMATION
  Report Type: 
  Country: None (occurrence: None)
  Receive Date: 20071016
  Receipt Date: 20071009
  Transmission Date: 20080405
  Serious: Yes (Other)
  Sender: FDA-Public Use
  Company Number: DE-PFIZER INC-2007076539

PATIENT
  Age: 40 Year
  Sex: Male
  Weight: 80 kg

DRUGS (1)
  1. REACTINE DUO [Suspect]
     Indication: SEASONAL ALLERGY
     Dosage: TEXT:1TABLET-FREQ:TWICE DAILY
     Route: 048

REACTIONS (4)
  - DYSURIA [None]
  - HYPERTENSION [None]
  - INSOMNIA [None]
  - NERVOUSNESS [None]
